FAERS Safety Report 4392286-7 (Version None)
Quarter: 2004Q3

REPORT INFORMATION
  Report Type: 
  Country: None (occurrence: None)
  Receive Date: 20040702
  Receipt Date: 20040213
  Transmission Date: 20050211
  Serious: Yes (Other)
  Sender: FDA-Public Use
  Company Number: 2004UW02666

PATIENT

DRUGS (2)
  1. CRESTOR [Suspect]
  2. LIPITOR [Concomitant]

REACTIONS (1)
  - NEUROPATHY [None]
